FAERS Safety Report 4389469-9 (Version None)
Quarter: 2004Q3

REPORT INFORMATION
  Report Type: 
  Country: None (occurrence: None)
  Receive Date: 20040702
  Receipt Date: 20040415
  Transmission Date: 20050211
  Serious: Yes (Hospitalization)
  Sender: FDA-Public Use
  Company Number: PHBS2004JP05136

PATIENT

DRUGS (3)
  1. TEGRETOL [Suspect]
     Dosage: 200 MG/DAY
     Route: 048
  2. PL [Concomitant]
     Route: 048
  3. FAMOTIDINE [Concomitant]
     Route: 048

REACTIONS (1)
  - HYPOAESTHESIA [None]
